FAERS Safety Report 5049767-2 (Version None)
Quarter: 2006Q3

REPORT INFORMATION
  Report Type: 
  Country: None (occurrence: None)
  Receive Date: 20060706
  Receipt Date: 20060621
  Transmission Date: 20061208
  Serious: Yes (Hospitalization)
  Sender: FDA-Public Use
  Company Number: 2006PV016102

PATIENT
  Age: 54 Year
  Sex: Female
  Weight: 96.1626 kg

DRUGS (7)
  1. BYETTA [Suspect]
     Indication: DIABETES MELLITUS NON-INSULIN-DEPENDENT
     Dosage: SEE IMAGE
     Route: 058
     Dates: start: 20051201, end: 20060101
  2. BYETTA [Suspect]
     Indication: DIABETES MELLITUS NON-INSULIN-DEPENDENT
     Dosage: SEE IMAGE
     Route: 058
     Dates: start: 20060101
  3. ACTOS [Concomitant]
  4. GLYBURIDE [Concomitant]
  5. LEVOXYL [Concomitant]
  6. ZESTRIL [Concomitant]
  7. TRICOR [Concomitant]

REACTIONS (11)
  - ARTHRALGIA [None]
  - ARTHRITIS [None]
  - BLOOD URINE PRESENT [None]
  - CALCULUS URETERIC [None]
  - CULTURE URINE POSITIVE [None]
  - ESCHERICHIA INFECTION [None]
  - GOUT [None]
  - JOINT SWELLING [None]
  - NEPHROLITHIASIS [None]
  - RENAL COLIC [None]
  - URINARY TRACT INFECTION [None]
